FAERS Safety Report 8858534 (Version 2)
Quarter: 2013Q1

REPORT INFORMATION
  Report Type: Spontaneous
  Country: US (occurrence: US)
  Receive Date: 20121024
  Receipt Date: 20130212
  Transmission Date: 20140127
  Serious: Yes (Hospitalization)
  Sender: FDA-Public Use
  Company Number: US-BAYER-2012-111294

PATIENT
  Age: 34 Year
  Sex: Female
  Weight: 88.89 kg

DRUGS (9)
  1. YASMIN [Suspect]
     Indication: CONTRACEPTION
     Dosage: UNK
     Dates: start: 200801, end: 200910
  2. OCELLA [Suspect]
     Indication: CONTRACEPTION
     Dosage: UNK
     Dates: start: 200801, end: 200910
  3. KEPPRA [Concomitant]
     Indication: MIGRAINE
     Dosage: UNK
     Route: 048
     Dates: start: 200801, end: 200806
  4. EFFEXOR [Concomitant]
     Indication: DEPRESSION
     Dosage: UNK UNK, PRN
     Route: 048
     Dates: start: 200908, end: 201001
  5. CYCLOBENZAPRINE [Concomitant]
     Indication: BACK PAIN
     Dosage: UNK UNK, PRN
     Route: 048
     Dates: start: 20090908
  6. CYCLOBENZAPRINE [Concomitant]
     Indication: NECK PAIN
  7. IBUPROFEN [Concomitant]
     Indication: PAIN
     Dosage: UNK UNK, PRN
     Route: 048
     Dates: start: 20090905
  8. HYDROCODONE [Concomitant]
     Indication: PAIN
     Dosage: UNK UNK, PRN
     Route: 048
     Dates: start: 20090908
  9. CYMBALTA [Concomitant]
     Indication: DEPRESSION
     Dosage: UNK
     Route: 048
     Dates: start: 200902, end: 200906

REACTIONS (9)
  - Cholelithiasis [None]
  - Cholecystitis chronic [None]
  - Mental disorder [None]
  - Abdominal pain [None]
  - Injury [None]
  - General physical health deterioration [None]
  - Emotional distress [None]
  - Pain [None]
  - Anxiety [None]
